FAERS Safety Report 15738472 (Version 1)
Quarter: 2018Q4

REPORT INFORMATION
  Report Type: Spontaneous
  Country: US (occurrence: US)
  Receive Date: 20181219
  Receipt Date: 20181219
  Transmission Date: 20190205
  Serious: No
  Sender: FDA-Public Use
  Company Number: US-AUROBINDO-AUR-APL-2018-036953

PATIENT
  Age: 12 Year
  Sex: Male

DRUGS (1)
  1. SERTRALINE HYDROCHLORIDE ORAL CONCENTRATE 20 MG/ML [Suspect]
     Active Substance: SERTRALINE HYDROCHLORIDE
     Indication: PRODUCT USED FOR UNKNOWN INDICATION
     Dosage: UNK
     Route: 048
     Dates: start: 20180714

REACTIONS (6)
  - Glossodynia [Recovered/Resolved]
  - Oral discomfort [Recovered/Resolved]
  - Paraesthesia [Recovered/Resolved]
  - Off label use [Recovered/Resolved]
  - Tongue discomfort [Recovered/Resolved]
  - Lip pain [Recovered/Resolved]

NARRATIVE: CASE EVENT DATE: 20180714
